FAERS Safety Report 24626182 (Version 1)
Quarter: 2024Q4

REPORT INFORMATION
  Report Type: Spontaneous
  Country: US (occurrence: US)
  Receive Date: 20241115
  Receipt Date: 20241115
  Transmission Date: 20250115
  Serious: Yes (Other)
  Sender: DOMPE FARMACEUTICI
  Company Number: US-FARMAPROD-202411-3841

PATIENT
  Sex: Female

DRUGS (16)
  1. OXERVATE [Suspect]
     Active Substance: CENEGERMIN-BKBJ
     Indication: Neurotrophic keratopathy
     Route: 047
     Dates: start: 20240724
  2. HYDROCORTISONE/ALOE [Concomitant]
  3. KETOCONAZOLE [Concomitant]
     Active Substance: KETOCONAZOLE
  4. STOOL SOFTENER (DOCUSATE) [Concomitant]
     Active Substance: DOCUSATE
  5. ALIGN [Concomitant]
     Active Substance: BIFIDOBACTERIUM LONGUM SUBSP. INFANTIS
  6. ATORVASTATIN CALCIUM [Concomitant]
     Active Substance: ATORVASTATIN CALCIUM
  7. EZETIMIBE [Concomitant]
     Active Substance: EZETIMIBE
  8. FAMOTIDINE [Concomitant]
     Active Substance: FAMOTIDINE
  9. METOPROLOL SUCCINATE [Concomitant]
     Active Substance: METOPROLOL SUCCINATE
  10. PANTOPRAZOLE SODIUM [Concomitant]
     Active Substance: PANTOPRAZOLE SODIUM
  11. ELIQUIS [Concomitant]
     Active Substance: APIXABAN
  12. METHENAMINE HIPPURATE [Concomitant]
     Active Substance: METHENAMINE HIPPURATE
  13. NEOMYCIN AND POLYMYXIN B SULFATES AND DEXAMETHASONE [Concomitant]
     Active Substance: DEXAMETHASONE\NEOMYCIN SULFATE\POLYMYXIN B SULFATE
  14. REFRESH TEARS [Concomitant]
     Active Substance: CARBOXYMETHYLCELLULOSE SODIUM
  15. GENTEAL TEARS [Concomitant]
     Active Substance: DEXTRAN 70\HYPROMELLOSE 2910 (4000 MPA.S)
     Dosage: 0.1%-0.3% DROPS
  16. Vitamin D-400 [Concomitant]

REACTIONS (1)
  - Eye infection staphylococcal [Unknown]
